FAERS Safety Report 6296170-3 (Version None)
Quarter: 2009Q3

REPORT INFORMATION
  Report Type: 
  Country: None (occurrence: None)
  Receive Date: 20090804
  Receipt Date: 20090727
  Transmission Date: 20100115
  Serious: No
  Sender: FDA-Public Use
  Company Number: JP-JNJFOC-20090709454

PATIENT

DRUGS (2)
  1. DUROTEP MT [Suspect]
     Indication: DRUG USE FOR UNKNOWN INDICATION
     Route: 062
  2. OXYNORM [Concomitant]
     Route: 048

REACTIONS (4)
  - DRUG PRESCRIBING ERROR [None]
  - IRRITABILITY [None]
  - OVERDOSE [None]
  - RESTLESSNESS [None]
